FAERS Safety Report 7756791-5 (Version None)
Quarter: 2011Q3

REPORT INFORMATION
  Report Type: 
  Country: None (occurrence: None)
  Receive Date: 20110916
  Receipt Date: 20110908
  Transmission Date: 20111222
  Serious: Yes (Life-Threatening, Other)
  Sender: FDA-Public Use
  Company Number: PHHY2011BR80107

PATIENT
  Sex: Female

DRUGS (2)
  1. EXFORGE HCT [Suspect]
     Dosage: 160 MG VALSARTAN/12.5 MG HYDROCHLOROTHIAZIDE/5 MG ANLOPIDIPINE BESILATE, AT NIGHT
     Dates: start: 20110907
  2. ATENOLOL [Suspect]
     Dosage: 50 MG, AT MORNING

REACTIONS (1)
  - BLOOD PRESSURE FLUCTUATION [None]
